FAERS Safety Report 23367267 (Version 1)
Quarter: 2024Q1

REPORT INFORMATION
  Report Type: Spontaneous
  Country: FI (occurrence: IQ)
  Receive Date: 20240104
  Receipt Date: 20240104
  Transmission Date: 20240410
  Serious: Yes (Congenital Anomaly)
  Sender: FDA-Public Use
  Company Number: None

PATIENT
  Sex: Male
  Weight: 3.64 kg

DRUGS (1)
  1. MISOPROSTOL [Suspect]
     Active Substance: MISOPROSTOL
     Indication: Abortion
     Dosage: 800 UG
     Route: 064
     Dates: start: 202305, end: 202305

REACTIONS (2)
  - Maternal exposure during pregnancy [Unknown]
  - Anal atresia [Unknown]

NARRATIVE: CASE EVENT DATE: 20230501
